FAERS Safety Report 19503157 (Version 4)
Quarter: 2021Q4

REPORT INFORMATION
  Report Type: Spontaneous
  Country: BE (occurrence: BE)
  Receive Date: 20210707
  Receipt Date: 20211019
  Transmission Date: 20220303
  Serious: Yes (Life-Threatening, Hospitalization)
  Sender: FDA-Public Use
  Company Number: BE-BIOGEN-2021BI01027189

PATIENT
  Age: 80 Year
  Sex: Female

DRUGS (5)
  1. DALFAMPRIDINE [Suspect]
     Active Substance: DALFAMPRIDINE
     Indication: Drug therapy
     Dosage: A CONTAINER WITH FAMPRIDINE HAD BEEN USED ACCIDENTALLY INSTEAD OF AMINOPHENAZONE
     Route: 065
  2. ANTIPYRINE [Concomitant]
     Active Substance: ANTIPYRINE
     Indication: Muscle spasms
     Dosage: ACCORDING TO THE LABEL, THE MEDICATION CONTAINED 25 MG QUININE SULPHATE, 162.5 MG AMIDOPYRINE, 18...
     Route: 065
  3. ASPIRIN [Concomitant]
     Active Substance: ASPIRIN
     Indication: Muscle spasms
     Dosage: ACCORDING TO THE LABEL, THE MEDICATION CONTAINED 25 MG QUININE SULPHATE, 162.5 MG AMIDOPYRINE, 18...
     Route: 065
  4. QUININE SULFATE [Concomitant]
     Active Substance: QUININE SULFATE
     Indication: Muscle spasms
     Dosage: ACCORDING TO THE LABEL, THE MEDICATION CONTAINED 25 MG QUININE SULPHATE, 162.5 MG AMIDOPYRINE, 18...
     Route: 065
  5. AMINOPHENAZONE [Concomitant]
     Active Substance: AMINOPHENAZONE
     Indication: Muscle spasms
     Dosage: ACCORDING TO THE LABEL, THE MEDICATION CONTAINED 25 MG QUININE SULPHATE, 162.5 MG AMIDOPYRINE, 18...
     Route: 065

REACTIONS (6)
  - Status epilepticus [Recovered/Resolved with Sequelae]
  - Product preparation error [Recovered/Resolved]
  - Accidental overdose [Unknown]
  - Drug ineffective [Unknown]
  - Toxicity to various agents [Recovered/Resolved]
  - Product dispensing error [Recovered/Resolved]
